FAERS Safety Report 20369692 (Version 1)
Quarter: 2022Q1

REPORT INFORMATION
  Report Type: Spontaneous
  Country: US (occurrence: US)
  Receive Date: 20220124
  Receipt Date: 20220124
  Transmission Date: 20220423
  Serious: No
  Sender: FDA-Public Use
  Company Number: US-APOTEX-2022AP000007

PATIENT
  Sex: Female

DRUGS (3)
  1. RUGBY NICOTINE [Suspect]
     Active Substance: NICOTINE
     Indication: Pain
     Dosage: 1 PATCH EVERY 16 TO 24HRS
     Route: 062
  2. RUGBY NICOTINE [Suspect]
     Active Substance: NICOTINE
     Indication: Smoking cessation therapy
  3. SUBLOCADE [Concomitant]
     Active Substance: BUPRENORPHINE
     Indication: Pain
     Dosage: UNK
     Route: 042

REACTIONS (2)
  - Product use in unapproved indication [Unknown]
  - Intentional product misuse [Unknown]
